FAERS Safety Report 8770951 (Version 1)
Quarter: 2012Q4

REPORT INFORMATION
  Report Type: 
  Country: US (occurrence: US)
  Receive Date: 20120906
  Receipt Date: 20120906
  Transmission Date: 20130627
  Serious: Yes (Hospitalization, Other)
  Sender: FDA-Public Use
  Company Number: US-PFIZER INC-2012215196

PATIENT
  Age: 44 Year
  Sex: Male
  Weight: 113 kg

DRUGS (2)
  1. LYRICA [Suspect]
     Indication: NERVE INJURY
     Dosage: 75 mg, 2x/day
     Route: 048
     Dates: start: 201207, end: 201208
  2. METFORMIN [Concomitant]
     Indication: DIABETES MELLITUS
     Dosage: 1000 mg, 2x/day

REACTIONS (5)
  - Protein urine present [Unknown]
  - Blood urine present [Unknown]
  - Rhabdomyolysis [Unknown]
  - Protein total increased [Unknown]
  - Somnolence [Unknown]
